FAERS Safety Report 5115157-7 (Version None)
Quarter: 2006Q3

REPORT INFORMATION
  Report Type: 
  Country: None (occurrence: None)
  Receive Date: 20060925
  Receipt Date: 20060925
  Transmission Date: 20061208
  Serious: Yes (Other)
  Sender: FDA-Public Use
  Company Number: None

PATIENT
  Age: 31 Year
  Sex: Female
  Weight: 95.7 kg

DRUGS (1)
  1. NIFEDIPINE [Suspect]
     Indication: RAYNAUD'S PHENOMENON
     Dosage: 30 MG 1 Q DAY PO [1 DOSE]
     Route: 048
     Dates: start: 20060912

REACTIONS (3)
  - ASTHENIA [None]
  - DIZZINESS [None]
  - IMPAIRED WORK ABILITY [None]
